FAERS Safety Report 16051916 (Version 1)
Quarter: 2019Q1

REPORT INFORMATION
  Report Type: Spontaneous
  Country: US (occurrence: US)
  Receive Date: 20190308
  Receipt Date: 20190308
  Transmission Date: 20190418
  Serious: Yes (Life-Threatening, Hospitalization)
  Sender: FDA-Public Use
  Company Number: US-SA-2019SA064090

PATIENT
  Age: 75 Year
  Sex: Female

DRUGS (2)
  1. ACETYLSALICYLIC ACID [Suspect]
     Active Substance: ASPIRIN
     Indication: ANTIPLATELET THERAPY
     Dosage: UNK
     Dates: start: 2014
  2. CLOPIDOGREL BISULFATE. [Suspect]
     Active Substance: CLOPIDOGREL BISULFATE
     Indication: ANTIPLATELET THERAPY
     Dosage: UNK
     Dates: start: 2014

REACTIONS (10)
  - Traumatic haematoma [Unknown]
  - Dysarthria [Unknown]
  - Cardiac arrest [Unknown]
  - Fall [Unknown]
  - Dysphonia [Unknown]
  - Mouth injury [Unknown]
  - Swollen tongue [Unknown]
  - Mouth haemorrhage [Unknown]
  - Dyspnoea [Unknown]
  - Brain injury [Unknown]
